FAERS Safety Report 10207060 (Version 1)
Quarter: 2014Q2

REPORT INFORMATION
  Report Type: Spontaneous
  Country: JP (occurrence: JP)
  Receive Date: 20140530
  Receipt Date: 20140530
  Transmission Date: 20141212
  Serious: Yes (Life-Threatening, Other)
  Sender: FDA-Public Use
  Company Number: JP-ROXANE LABORATORIES, INC.-2014-RO-00802RO

PATIENT
  Age: 51 Year
  Sex: Male

DRUGS (19)
  1. CYCLOPHOSPHAMIDE TABLETS USP [Suspect]
     Indication: CHRONIC LYMPHOCYTIC LEUKAEMIA
     Route: 065
  2. CYCLOPHOSPHAMIDE TABLETS USP [Suspect]
     Route: 065
  3. METHOTREXATE [Suspect]
     Indication: PROPHYLAXIS AGAINST GRAFT VERSUS HOST DISEASE
     Route: 065
  4. MYCOPHENOLATE MOFETIL [Suspect]
     Indication: LUNG DISORDER
     Route: 065
  5. ADRIAMYCIN [Suspect]
     Indication: CHRONIC LYMPHOCYTIC LEUKAEMIA
     Route: 065
  6. VINCRISTINE [Suspect]
     Indication: CHRONIC LYMPHOCYTIC LEUKAEMIA
     Route: 065
  7. PREDNISOLONE [Suspect]
     Indication: CHRONIC LYMPHOCYTIC LEUKAEMIA
     Route: 065
  8. PREDNISOLONE [Suspect]
     Indication: LUNG DISORDER
     Route: 065
  9. PREDNISOLONE [Suspect]
     Route: 065
  10. RITUXIMAB [Suspect]
     Indication: CHRONIC LYMPHOCYTIC LEUKAEMIA
     Route: 065
  11. RITUXIMAB [Suspect]
     Route: 065
  12. RITUXIMAB [Suspect]
     Route: 065
  13. FLUDARABINE [Suspect]
     Indication: STEM CELL TRANSPLANT
     Route: 065
  14. BUSULFAN [Suspect]
     Indication: STEM CELL TRANSPLANT
     Route: 065
  15. CYCLOSPORINE [Suspect]
     Indication: PROPHYLAXIS AGAINST GRAFT VERSUS HOST DISEASE
     Route: 042
  16. METHYLPREDNISOLONE [Suspect]
     Indication: LUNG DISORDER
     Dosage: 1 G
     Route: 065
  17. ERYTHROMYCIN [Suspect]
     Indication: LUNG DISORDER
     Route: 065
  18. BECLOMETHASONE DIPROPIONATE [Suspect]
     Indication: LUNG DISORDER
     Route: 055
  19. PENTOSTATIN [Suspect]
     Indication: CHRONIC LYMPHOCYTIC LEUKAEMIA
     Route: 065

REACTIONS (7)
  - Chronic lymphocytic leukaemia [Recovered/Resolved]
  - Lung disorder [Recovered/Resolved]
  - Neutropenia [Unknown]
  - Thrombocytopenia [Unknown]
  - Acute graft versus host disease in skin [Recovered/Resolved]
  - Lichen planus [Unknown]
  - Pigmentation disorder [Unknown]
